FAERS Safety Report 8520592-0 (Version None)
Quarter: 2012Q3

REPORT INFORMATION
  Report Type: 
  Country: None (occurrence: None)
  Receive Date: 20120719
  Receipt Date: 20120704
  Transmission Date: 20120928
  Serious: Yes (Other)
  Sender: FDA-Public Use
  Company Number: JP-PFIZER INC-2012167943

PATIENT
  Age: 88 Year
  Sex: Female

DRUGS (16)
  1. VESICARE [Concomitant]
     Dosage: UNK
  2. MIGLITOL [Suspect]
     Indication: TYPE 1 DIABETES MELLITUS
     Dosage: 50 MG, 2X/DAY
     Route: 048
     Dates: start: 20100605
  3. MITIGLINIDE [Concomitant]
     Dosage: UNK
  4. HYALEIN [Concomitant]
     Dosage: UNK
  5. CALBLOCK [Concomitant]
     Dosage: UNK
  6. LANTUS [Concomitant]
     Dosage: 9 IU, 1X/DAY (BEFORE LUNCH)
  7. EVISTA [Concomitant]
     Dosage: UNK
  8. AVAPRO [Concomitant]
     Dosage: UNK
  9. LANTUS [Concomitant]
     Dosage: 11 IU, 1X/DAY (BEFORE LUNCH)
  10. VITAMIN B12 [Concomitant]
  11. ZOLPIDEM [Concomitant]
     Dosage: UNK
  12. P MAGEN [Concomitant]
     Dosage: UNK
  13. SIGMART [Concomitant]
     Dosage: UNK
  14. XALATAN [Concomitant]
     Dosage: UNK
  15. HYPADIL [Concomitant]
     Dosage: UNK
  16. LEVOFLOXACIN [Concomitant]
     Dosage: UNK

REACTIONS (5)
  - HYPOGLYCAEMIA [None]
  - URINARY TRACT INFECTION [None]
  - HYPERTENSION [None]
  - VERTIGO [None]
  - NASOPHARYNGITIS [None]
